FAERS Safety Report 6678236-9 (Version None)
Quarter: 2010Q2

REPORT INFORMATION
  Report Type: 
  Country: None (occurrence: None)
  Receive Date: 20100408
  Receipt Date: 20100408
  Transmission Date: 20101027
  Serious: Yes (Congenital Anomaly)
  Sender: FDA-Public Use
  Company Number: None

PATIENT
  Age: 7 Day
  Sex: Female
  Weight: 2.78 kg

DRUGS (1)
  1. HEPARIN SODIUM 1,000 UNITS AND SODIUM CHLORIDE 0.9% [Suspect]
     Indication: THROMBOSIS PROPHYLAXIS
     Dosage: AS STATED ABOVE IV
     Route: 042
     Dates: start: 20100401, end: 20100402

REACTIONS (5)
  - DRUG EFFECT DECREASED [None]
  - GENERAL PHYSICAL HEALTH DETERIORATION [None]
  - HEPARIN RESISTANCE [None]
  - SHUNT THROMBOSIS [None]
  - SURGICAL PROCEDURE REPEATED [None]
